FAERS Safety Report 6430743-X (Version None)
Quarter: 2009Q4

REPORT INFORMATION
  Report Type: 
  Country: None (occurrence: None)
  Receive Date: 20091105
  Receipt Date: 20091105
  Transmission Date: 20100525
  Serious: Yes (Hospitalization)
  Sender: FDA-Public Use
  Company Number: None

PATIENT
  Sex: Male
  Weight: 76 kg

DRUGS (4)
  1. BEVACIZUMAB (RHUMAB VEGF) 1050 MG [Suspect]
     Dosage: 1050 MG
     Dates: end: 20090908
  2. FLUOROURACIL [Suspect]
     Dosage: 9700 MG
     Dates: end: 20090908
  3. LEUCOVORIN CALCIUM [Suspect]
     Dosage: 2280 MG
     Dates: end: 20090908
  4. ELOXATIN [Suspect]
     Dosage: 345 MG
     Dates: end: 20090908

REACTIONS (5)
  - ABDOMINAL DISTENSION [None]
  - ABDOMINAL TENDERNESS [None]
  - BLOOD GLUCOSE INCREASED [None]
  - NAUSEA [None]
  - VOLVULUS [None]
